FAERS Safety Report 4418295-7 (Version None)
Quarter: 2004Q3

REPORT INFORMATION
  Report Type: 
  Country: None (occurrence: None)
  Receive Date: 20040809
  Receipt Date: 20040203
  Transmission Date: 20050211
  Serious: No
  Sender: FDA-Public Use
  Company Number: US-GLAXOSMITHKLINE-A0496302A

PATIENT
  Age: 29 Year
  Sex: Female

DRUGS (2)
  1. PAXIL CR [Suspect]
     Indication: DEPRESSION
     Dosage: 25MG PER DAY
     Route: 048
  2. SKELAXIN [Concomitant]

REACTIONS (3)
  - ATAXIA [None]
  - DYSTONIA [None]
  - NERVOUS SYSTEM DISORDER [None]
